FAERS Safety Report 25130515 (Version 2)
Quarter: 2025Q3

REPORT INFORMATION
  Report Type: Spontaneous
  Country: US (occurrence: US)
  Receive Date: 20250327
  Receipt Date: 20250714
  Transmission Date: 20251021
  Serious: No
  Sender: CALLIDITAS THERAPEUTICS AB
  Company Number: US-Calliditas-2025CAL00758

PATIENT
  Age: 35 Year
  Sex: Male

DRUGS (3)
  1. TARPEYO [Suspect]
     Active Substance: BUDESONIDE
     Indication: IgA nephropathy
     Route: 048
     Dates: start: 20240829
  2. SKYRIZI [Concomitant]
     Active Substance: RISANKIZUMAB-RZAA
  3. FILSPARI [Concomitant]
     Active Substance: SPARSENTAN

REACTIONS (2)
  - Weight increased [Unknown]
  - Swelling face [Unknown]

NARRATIVE: CASE EVENT DATE: 20250305
